FAERS Safety Report 26024388 (Version 1)
Quarter: 2025Q4

REPORT INFORMATION
  Report Type: Spontaneous
  Country: US (occurrence: US)
  Receive Date: 20251111
  Receipt Date: 20251111
  Transmission Date: 20260117
  Serious: Yes (Hospitalization)
  Sender: TRIS PHARMA, INC.
  Company Number: US-TRIS PHARMA, INC.-25US012144

PATIENT
  Age: 8 Year

DRUGS (1)
  1. DEFLAZACORT [Suspect]
     Active Substance: DEFLAZACORT
     Indication: Product used for unknown indication
     Dosage: 1.4 MILLILITRE, ONCE DAILY (QD)

REACTIONS (3)
  - Fall [Unknown]
  - Spinal fracture [Unknown]
  - Osteoporosis [Unknown]
